FAERS Safety Report 10730584 (Version 5)
Quarter: 2015Q2

REPORT INFORMATION
  Report Type: Spontaneous
  Country: JP (occurrence: JP)
  Receive Date: 20150122
  Receipt Date: 20150526
  Transmission Date: 20150821
  Serious: Yes (Other)
  Sender: FDA-Public Use
  Company Number: JP-PFIZER INC-2015023287

PATIENT
  Age: 68 Year
  Sex: Male

DRUGS (4)
  1. ZYLORIC [Suspect]
     Active Substance: ALLOPURINOL
     Dosage: UNK
     Route: 048
  2. LIPITOR [Suspect]
     Active Substance: ATORVASTATIN CALCIUM
     Dosage: 10 MG, 1X/DAY
     Route: 048
     Dates: start: 201203, end: 201401
  3. SAIREI-TO [Suspect]
     Active Substance: UNSPECIFIED INGREDIENT
     Dosage: UNK
  4. TAKEPRON [Suspect]
     Active Substance: LANSOPRAZOLE
     Dosage: UNK
     Route: 048
     Dates: start: 200910, end: 201401

REACTIONS (1)
  - Interstitial lung disease [Recovering/Resolving]
